FAERS Safety Report 11707832 (Version 1)
Quarter: 2015Q4

REPORT INFORMATION
  Report Type: Spontaneous
  Country: US (occurrence: US)
  Receive Date: 20151104
  Receipt Date: 20151104
  Transmission Date: 20160304
  Serious: No
  Sender: FDA-Public Use
  Company Number: US-ELI_LILLY_AND_COMPANY-US201103004462

PATIENT
  Sex: Female

DRUGS (6)
  1. PLAVIX [Concomitant]
     Active Substance: CLOPIDOGREL BISULFATE
     Dosage: UNK
  2. FORTEO [Suspect]
     Active Substance: TERIPARATIDE
     Dosage: 20 UG, QD
     Route: 058
  3. FORTEO [Suspect]
     Active Substance: TERIPARATIDE
     Dosage: 20 UG, QD
     Route: 058
  4. FORTEO [Suspect]
     Active Substance: TERIPARATIDE
     Dosage: 20 UG, QD
     Route: 058
  5. FORTEO [Suspect]
     Active Substance: TERIPARATIDE
     Dosage: 20 UG, QD
     Route: 058
  6. FORTEO [Suspect]
     Active Substance: TERIPARATIDE
     Indication: OSTEOPOROSIS
     Dosage: 20 UG, DAILY (1/D)
     Route: 058
     Dates: start: 20110217

REACTIONS (14)
  - Arthritis [Unknown]
  - Urinary tract infection [Recovering/Resolving]
  - Abdominal discomfort [Unknown]
  - Pruritus [Not Recovered/Not Resolved]
  - Diarrhoea [Recovered/Resolved]
  - Rash pruritic [Recovering/Resolving]
  - Malaise [Unknown]
  - Diarrhoea [Unknown]
  - Feeling cold [Unknown]
  - Dizziness [Unknown]
  - Pain [Unknown]
  - Injection site pruritus [Unknown]
  - Gastrointestinal disorder [Unknown]
  - Muscle spasms [Unknown]
